FAERS Safety Report 22661365 (Version 1)
Quarter: 2023Q2

REPORT INFORMATION
  Report Type: Spontaneous
  Country: NL (occurrence: NL)
  Receive Date: 20230630
  Receipt Date: 20230630
  Transmission Date: 20230721
  Serious: Yes (Other)
  Sender: FDA-Public Use
  Company Number: None

PATIENT
  Sex: Female
  Weight: 71 kg

DRUGS (2)
  1. ANASTROZOLE [Suspect]
     Active Substance: ANASTROZOLE
     Indication: Breast cancer stage III
     Dosage: ANASTROZOL TABLET 1MG / BRAND NAME NOT SPECIFIED,
     Route: 065
     Dates: start: 20180530, end: 20220330
  2. SERTRALINE [Concomitant]
     Active Substance: SERTRALINE HYDROCHLORIDE
     Indication: Product used for unknown indication
     Dosage: 100 MG (MILLIGRAM), SERTRALINE TABLET 100MG / BRAND NAME NOT SPECIFIED
     Route: 065

REACTIONS (4)
  - Arrhythmia [Recovering/Resolving]
  - Hypertension [Recovering/Resolving]
  - Weight increased [Recovering/Resolving]
  - Depressed mood [Recovering/Resolving]
